FAERS Safety Report 13513675 (Version 2)
Quarter: 2017Q2

REPORT INFORMATION
  Report Type: Spontaneous
  Country: DE (occurrence: DE)
  Receive Date: 20170504
  Receipt Date: 20170504
  Transmission Date: 20170830
  Serious: Yes (Death, Life-Threatening, Hospitalization, Other)
  Sender: FDA-Public Use
  Company Number: DE-ACCORD-051046

PATIENT
  Age: 15 Year
  Sex: Female

DRUGS (4)
  1. VINCRISTINE [Suspect]
     Active Substance: VINCRISTINE
     Indication: HODGKIN^S DISEASE
     Dosage: DAY 1 AND 8
  2. ETOPOSIDE. [Suspect]
     Active Substance: ETOPOSIDE
     Indication: HODGKIN^S DISEASE
     Dosage: DAY 1-5
  3. DOXORUBICIN [Suspect]
     Active Substance: DOXORUBICIN
     Indication: HODGKIN^S DISEASE
     Dosage: DAY 1 AND 8
  4. PREDNISONE. [Suspect]
     Active Substance: PREDNISONE
     Indication: HODGKIN^S DISEASE
     Dosage: 2 CHEMOTHERAPY CYCLES, DAY1-15

REACTIONS (8)
  - C-reactive protein increased [Unknown]
  - Epilepsy [Unknown]
  - Sepsis [Fatal]
  - Herpes simplex [Fatal]
  - Multiple organ dysfunction syndrome [Fatal]
  - Leukopenia [Unknown]
  - Off label use [Unknown]
  - Stomatitis [Unknown]
